FAERS Safety Report 16007463 (Version 1)
Quarter: 2019Q1

REPORT INFORMATION
  Report Type: Spontaneous
  Country: US (occurrence: US)
  Receive Date: 20190226
  Receipt Date: 20190226
  Transmission Date: 20190418
  Serious: Yes (Hospitalization, Other)
  Sender: FDA-Public Use
  Company Number: US-ASTRAZENECA-2019SE27984

PATIENT
  Age: 1038 Month
  Sex: Female
  Weight: 69.9 kg

DRUGS (19)
  1. EXELON [Concomitant]
     Active Substance: RIVASTIGMINE TARTRATE
     Dosage: 9.5 MG/24HR
  2. FOSAMAX [Concomitant]
     Active Substance: ALENDRONATE SODIUM
     Dosage: 70 MG
  3. PENNSAID [Concomitant]
     Active Substance: DICLOFENAC SODIUM
  4. MYRBETRIQ [Concomitant]
     Active Substance: MIRABEGRON
     Dosage: 50 MG
  5. LIPITOR [Concomitant]
     Active Substance: ATORVASTATIN CALCIUM
     Dosage: 10 MG
  6. NUEDEXTA [Concomitant]
     Active Substance: DEXTROMETHORPHAN HYDROBROMIDE\QUINIDINE SULFATE
     Dosage: 20-10 MG
  7. TEMAZEPAM. [Suspect]
     Active Substance: TEMAZEPAM
     Dosage: 15.0MG UNKNOWN
     Route: 065
     Dates: start: 20180606, end: 20190101
  8. RYTARY [Suspect]
     Active Substance: CARBIDOPA\LEVODOPA
     Indication: PARKINSON^S DISEASE
     Dosage: 61.75 MG, 9X/DAY
     Route: 065
     Dates: start: 20181225
  9. TRAZODONE [Concomitant]
     Active Substance: TRAZODONE HYDROCHLORIDE
     Dosage: 50 MG
     Dates: start: 201811
  10. SEROQUEL [Suspect]
     Active Substance: QUETIAPINE FUMARATE
     Indication: HALLUCINATION
     Dosage: 25.0MG UNKNOWN
     Route: 048
     Dates: start: 20181225, end: 201812
  11. MELOXICAM. [Concomitant]
     Active Substance: MELOXICAM
     Dosage: 15 MG
  12. AMANTADINE. [Suspect]
     Active Substance: AMANTADINE HYDROCHLORIDE
     Indication: DYSKINESIA
     Dosage: 274 MG, DAILY AT BEDTIME
     Route: 048
     Dates: start: 20180701
  13. RYTARY [Suspect]
     Active Substance: CARBIDOPA\LEVODOPA
     Indication: PARKINSON^S DISEASE
     Route: 065
     Dates: end: 20181224
  14. OMEPRAZOLE. [Suspect]
     Active Substance: OMEPRAZOLE
     Dosage: 40.0MG UNKNOWN
     Route: 048
  15. AMANTADINE. [Suspect]
     Active Substance: AMANTADINE HYDROCHLORIDE
     Indication: DYSKINESIA
     Dosage: 137 MG, DAILY AT BEDTIME
     Route: 048
     Dates: start: 20180624, end: 20180630
  16. LEXAPRO [Concomitant]
     Active Substance: ESCITALOPRAM OXALATE
     Dosage: 10 MG
     Dates: start: 201811
  17. ESCITALOPRAM [Concomitant]
     Active Substance: ESCITALOPRAM OXALATE
     Dosage: 20 MG
     Dates: start: 20181225
  18. LOSARTAN POTASSIUM AND HYDROCHLOROTHIAZIDE [Concomitant]
     Active Substance: HYDROCHLOROTHIAZIDE\LOSARTAN POTASSIUM
     Dosage: 100-12.5
  19. LACTULOSE. [Concomitant]
     Active Substance: LACTULOSE
     Dosage: 10/15 G/ML

REACTIONS (18)
  - Tremor [Recovering/Resolving]
  - Skin cancer [Unknown]
  - Dyskinesia [Recovering/Resolving]
  - Gait disturbance [Not Recovered/Not Resolved]
  - Gouty arthritis [Not Recovered/Not Resolved]
  - Cataract [Unknown]
  - Arthralgia [Unknown]
  - Weight increased [Not Recovered/Not Resolved]
  - Malaise [Unknown]
  - Hallucination [Not Recovered/Not Resolved]
  - Fall [Unknown]
  - Dyspnoea [Unknown]
  - Pain [Not Recovered/Not Resolved]
  - Dementia [Not Recovered/Not Resolved]
  - Lethargy [Unknown]
  - Back pain [Unknown]
  - Psychotic disorder [Not Recovered/Not Resolved]
  - Decreased appetite [Unknown]

NARRATIVE: CASE EVENT DATE: 201901
